FAERS Safety Report 15098172 (Version 2)
Quarter: 2018Q3

REPORT INFORMATION
  Report Type: Spontaneous
  Country: GB (occurrence: GB)
  Receive Date: 20180702
  Receipt Date: 20180907
  Transmission Date: 20181010
  Serious: Yes (Hospitalization)
  Sender: FDA-Public Use
  Company Number: GB-PFIZER INC-2018261483

PATIENT
  Age: 59 Year
  Sex: Male
  Weight: 78 kg

DRUGS (9)
  1. SALMETEROL [Concomitant]
     Active Substance: SALMETEROL
     Dosage: 2 DF, DAILY
     Dates: start: 20161006
  2. SILDENAFIL. [Concomitant]
     Active Substance: SILDENAFIL
     Dosage: USED AS DIRECTED
     Dates: start: 20160323
  3. ATORVASTATIN [Suspect]
     Active Substance: ATORVASTATIN
     Dosage: UNK
     Dates: start: 20180504, end: 20180515
  4. AMOXICILLIN. [Concomitant]
     Active Substance: AMOXICILLIN
     Dosage: 3 DF, DAILY
     Dates: start: 20180420, end: 20180425
  5. XARELTO [Concomitant]
     Active Substance: RIVAROXABAN
     Dosage: 1 DF, 1X/DAY
     Dates: start: 20171024, end: 20180511
  6. RANITIDINE. [Concomitant]
     Active Substance: RANITIDINE
     Dosage: 1 DF, 1X/DAY AT NIGHT
     Dates: start: 20170719
  7. CLENIL MODULITE [Concomitant]
     Active Substance: BECLOMETHASONE DIPROPIONATE
     Dosage: 4 DF, DAILY
     Route: 055
     Dates: start: 20161006
  8. CANDESARTAN. [Concomitant]
     Active Substance: CANDESARTAN
     Dosage: 2 DF, DAILY
     Dates: start: 20160908
  9. ALLOPURINOL. [Concomitant]
     Active Substance: ALLOPURINOL
     Dosage: 2 DF, DAILY
     Dates: start: 20170405

REACTIONS (2)
  - Mental status changes [Recovering/Resolving]
  - Delirium [Recovered/Resolved]

NARRATIVE: CASE EVENT DATE: 20180516
